FAERS Safety Report 17287919 (Version 4)
Quarter: 2020Q2

REPORT INFORMATION
  Report Type: Spontaneous
  Country: US (occurrence: US)
  Receive Date: 20200120
  Receipt Date: 20200513
  Transmission Date: 20200713
  Serious: Yes (Hospitalization, Other)
  Sender: FDA-Public Use
  Company Number: US-AMGEN-USASP2020006762

PATIENT
  Age: 64 Year
  Sex: Female
  Weight: 109 kg

DRUGS (4)
  1. ENBREL [Suspect]
     Active Substance: ETANERCEPT
     Indication: PSORIATIC ARTHROPATHY
     Dosage: UNK
     Route: 065
  2. HUMIRA [Suspect]
     Active Substance: ADALIMUMAB
     Indication: PSORIATIC ARTHROPATHY
  3. HUMIRA [Suspect]
     Active Substance: ADALIMUMAB
     Indication: PSORIATIC ARTHROPATHY
     Dosage: UNK
     Route: 058
     Dates: start: 2012
  4. ENBREL [Suspect]
     Active Substance: ETANERCEPT
     Dosage: UNK
     Route: 065

REACTIONS (7)
  - Drug intolerance [Unknown]
  - Peroneal nerve palsy [Recovered/Resolved]
  - Enthesopathy [Not Recovered/Not Resolved]
  - Pneumonia [Unknown]
  - Neuropathy peripheral [Recovered/Resolved]
  - Colitis microscopic [Not Recovered/Not Resolved]
  - Hypogammaglobulinaemia [Unknown]

NARRATIVE: CASE EVENT DATE: 2015
